FAERS Safety Report 11092666 (Version 2)
Quarter: 2015Q3

REPORT INFORMATION
  Report Type: Spontaneous
  Country: US (occurrence: US)
  Receive Date: 20150506
  Receipt Date: 20150804
  Transmission Date: 20151125
  Serious: No
  Sender: FDA-Public Use
  Company Number: US-DRREDDYS-USA/USA/15/0047328

PATIENT
  Sex: Male

DRUGS (1)
  1. ATORVASTATIN TABLETS 80 MG (202357) [Suspect]
     Active Substance: ATORVASTATIN
     Indication: CARDIAC DISORDER
     Route: 048

REACTIONS (2)
  - No adverse event [Unknown]
  - Product contamination physical [Unknown]
